FAERS Safety Report 9499424 (Version 1)
Quarter: 2013Q4

REPORT INFORMATION
  Report Type: Spontaneous
  Country: US (occurrence: None)
  Receive Date: 20130903
  Receipt Date: 20130903
  Transmission Date: 20140711
  Serious: Yes (Hospitalization)
  Sender: FDA-Public Use
  Company Number: None

PATIENT
  Age: 71 Year
  Sex: Female
  Weight: 60.33 kg

DRUGS (2)
  1. CARFILZOMIB 56MG/M2 [Suspect]
     Indication: PLASMA CELL MYELOMA
     Dosage: 2DAYS/WEEK/3WEEKS IV
     Route: 042
     Dates: start: 20130625, end: 20130828
  2. DOXIL 30MG/M2 [Suspect]
     Indication: PLASMA CELL MYELOMA
     Dosage: 1 DOSE/3WEEK CYCLE  IV
     Route: 042
     Dates: start: 20130626, end: 20130827

REACTIONS (3)
  - Cough [None]
  - Haemoglobin decreased [None]
  - Urinary tract infection [None]
